FAERS Safety Report 5807970-5 (Version None)
Quarter: 2008Q3

REPORT INFORMATION
  Report Type: 
  Country: None (occurrence: None)
  Receive Date: 20080711
  Receipt Date: 20080703
  Transmission Date: 20090109
  Serious: Yes (Disabling, Other)
  Sender: FDA-Public Use
  Company Number: CA-ABBOTT-08P-028-0461018-00

PATIENT
  Sex: Female

DRUGS (2)
  1. LIPIDIL [Suspect]
     Indication: DRUG USE FOR UNKNOWN INDICATION
     Dosage: SUPRA QID
     Route: 048
     Dates: start: 20021001, end: 20050617
  2. LIPIDIL [Suspect]
     Dosage: EZ QID
     Route: 048
     Dates: start: 20070425

REACTIONS (1)
  - DEAFNESS BILATERAL [None]
